FAERS Safety Report 9896197 (Version 2)
Quarter: 2014Q1

REPORT INFORMATION
  Report Type: Spontaneous
  Country: US (occurrence: US)
  Receive Date: 20140213
  Receipt Date: 20140213
  Transmission Date: 20141002
  Serious: No
  Sender: FDA-Public Use
  Company Number: US-BRISTOL-MYERS SQUIBB COMPANY-17327610

PATIENT
  Age: 71 Year
  Sex: Female

DRUGS (1)
  1. ORENCIA FOR INJ [Suspect]
     Dosage: RECENT DOSE DEC12?250MG VIAL, POWDER LYOPHILIC SOLUTION
     Route: 042

REACTIONS (3)
  - Arthralgia [Unknown]
  - Headache [Unknown]
  - Drug ineffective [Unknown]
